FAERS Safety Report 18096523 (Version 2)
Quarter: 2020Q3

REPORT INFORMATION
  Report Type: Spontaneous
  Country: FR (occurrence: FR)
  Receive Date: 20200730
  Receipt Date: 20200805
  Transmission Date: 20201103
  Serious: Yes (Death, Other)
  Sender: FDA-Public Use
  Company Number: FR-PFIZER INC-2020288597

PATIENT
  Age: 41 Year
  Sex: Male

DRUGS (1)
  1. NOREPINEPHRINE BITARTRATE. [Suspect]
     Active Substance: NOREPINEPHRINE BITARTRATE
     Dosage: 0.22 UG/KG (FREQ: 1 MIN)
     Route: 065

REACTIONS (1)
  - Drug ineffective [Fatal]
